FAERS Safety Report 10542857 (Version 2)
Quarter: 2014Q4

REPORT INFORMATION
  Report Type: Report from Study
  Country: IT (occurrence: IT)
  Receive Date: 20141027
  Receipt Date: 20141030
  Transmission Date: 20150529
  Serious: Yes (Death, Hospitalization)
  Sender: FDA-Public Use
  Company Number: IT-ROCHE-1477686

PATIENT
  Age: 70 Year
  Sex: Male
  Weight: 80 kg

DRUGS (11)
  1. OLPRESS [Concomitant]
     Active Substance: OLMESARTAN MEDOXOMIL
  2. BUPRENORPHINE HCL [Concomitant]
     Active Substance: BUPRENORPHINE HYDROCHLORIDE
     Route: 065
  3. 5-FLUOROURACIL [Suspect]
     Active Substance: FLUOROURACIL
     Indication: COLORECTAL CANCER METASTATIC
     Dosage: ROUTE REPORTED AS: IV IC 48H?LAST DOSE (5900MG) PRIOR TO CARDIAC ARREST: 11/MAR/2009
     Route: 042
     Dates: start: 20090309, end: 20090311
  4. RANITIDINE [Concomitant]
     Active Substance: RANITIDINE\RANITIDINE HYDROCHLORIDE
  5. OXALIPLATIN. [Suspect]
     Active Substance: OXALIPLATIN
     Indication: COLORECTAL CANCER METASTATIC
     Dosage: LAST DOSE (155MG) PRIOR TO CARDIAC ARREST: 09/MAR/2009
     Route: 042
     Dates: start: 20090309, end: 20090309
  6. LEDERFOLIN [Suspect]
     Active Substance: LEUCOVORIN CALCIUM
     Indication: COLORECTAL CANCER METASTATIC
     Dosage: LAST DOSE (370MG) PRIOR TO CARDIAC ARREST: 09/MAR/2009
     Route: 042
     Dates: start: 20090309, end: 20090309
  7. LOBIVON [Concomitant]
     Active Substance: NEBIVOLOL HYDROCHLORIDE
  8. IRINOTECAN [Suspect]
     Active Substance: IRINOTECAN
     Indication: COLORECTAL CANCER METASTATIC
     Dosage: LAST DOSE (305MG) PRIOR TO CARDIAC ARREST: 09/MAR/2009
     Route: 042
     Dates: start: 20090309, end: 20090309
  9. BEVACIZUMAB [Suspect]
     Active Substance: BEVACIZUMAB
     Indication: COLORECTAL CANCER METASTATIC
     Dosage: LAST DOSE (400MG) PRIOR TO CARDIAC ARREST: 09/MAR/2009
     Route: 042
     Dates: start: 20090309, end: 20090309
  10. PLASIL [Concomitant]
     Active Substance: METOCLOPRAMIDE HYDROCHLORIDE
  11. CO-EFFERALGAN [Concomitant]
     Active Substance: ACETAMINOPHEN\CODEINE PHOSPHATE

REACTIONS (1)
  - Circulatory collapse [Fatal]

NARRATIVE: CASE EVENT DATE: 20090319
